FAERS Safety Report 10703604 (Version 3)
Quarter: 2015Q1

REPORT INFORMATION
  Report Type: Report from Study
  Country: US (occurrence: US)
  Receive Date: 20150112
  Receipt Date: 20150123
  Transmission Date: 20150721
  Serious: Yes (Death, Hospitalization, Other)
  Sender: FDA-Public Use
  Company Number: US-ROCHE-1442066

PATIENT
  Age: 61 Year
  Sex: Male

DRUGS (7)
  1. LISINOPRIL. [Concomitant]
     Active Substance: LISINOPRIL
     Route: 048
  2. METOPROLOL SUCCINATE. [Concomitant]
     Active Substance: METOPROLOL SUCCINATE
     Dosage: ER
     Route: 048
  3. PANTOPRAZOLE [Concomitant]
     Active Substance: PANTOPRAZOLE SODIUM
     Dosage: DELAYED RELEASE
     Route: 048
  4. SYNTHROID [Concomitant]
     Active Substance: LEVOTHYROXINE SODIUM
     Route: 048
  5. AVASTIN [Suspect]
     Active Substance: BEVACIZUMAB
     Indication: OESOPHAGEAL ADENOCARCINOMA METASTATIC
     Route: 065
     Dates: start: 200509
  6. IRINOTECAN [Concomitant]
     Active Substance: IRINOTECAN
  7. CISPLATIN. [Suspect]
     Active Substance: CISPLATIN
     Indication: OESOPHAGEAL ADENOCARCINOMA METASTATIC
     Route: 065

REACTIONS (26)
  - Hypovolaemia [Unknown]
  - Pleural effusion [Unknown]
  - Hot flush [Unknown]
  - Hypertension [Unknown]
  - Death [Fatal]
  - Nausea [Unknown]
  - Vomiting [Unknown]
  - Polycythaemia [Unknown]
  - Gingival pain [Unknown]
  - Hyponatraemia [Unknown]
  - Musculoskeletal chest pain [Unknown]
  - Rhinorrhoea [Unknown]
  - Hypoxia [Unknown]
  - Depression [Unknown]
  - Sinus disorder [Unknown]
  - Cardiac murmur [Unknown]
  - Vision blurred [Unknown]
  - Obstruction gastric [Recovering/Resolving]
  - Deep vein thrombosis [Recovered/Resolved]
  - Cholecystitis [Unknown]
  - Prostatic specific antigen increased [Unknown]
  - Headache [Unknown]
  - Spinal disorder [Unknown]
  - Renal failure [Unknown]
  - Duodenal ulcer [Recovering/Resolving]
  - Stomatitis [Unknown]

NARRATIVE: CASE EVENT DATE: 20140920
